FAERS Safety Report 11935176 (Version 2)
Quarter: 2016Q2

REPORT INFORMATION
  Report Type: Spontaneous
  Country: US (occurrence: US)
  Receive Date: 20160121
  Receipt Date: 20160418
  Transmission Date: 20160815
  Serious: No
  Sender: FDA-Public Use
  Company Number: US-OTSUKA-2015_013076

PATIENT
  Age: 16 Year
  Sex: Male
  Weight: 68.03 kg

DRUGS (4)
  1. KLONOPIN [Concomitant]
     Active Substance: CLONAZEPAM
     Indication: PRODUCT USED FOR UNKNOWN INDICATION
     Dosage: 1 MG, UNK
     Route: 065
  2. ADDERALL [Concomitant]
     Active Substance: AMPHETAMINE ASPARTATE\AMPHETAMINE SULFATE\DEXTROAMPHETAMINE SACCHARATE\DEXTROAMPHETAMINE SULFATE
     Indication: PRODUCT USED FOR UNKNOWN INDICATION
     Dosage: 5 MG, UNK
     Route: 065
  3. REXULTI [Suspect]
     Active Substance: BREXPIPRAZOLE
     Indication: PSYCHOTIC DISORDER
     Dosage: 4 MG, QD
     Route: 048
     Dates: start: 20151013
  4. LAMICTAL [Concomitant]
     Active Substance: LAMOTRIGINE
     Indication: PRODUCT USED FOR UNKNOWN INDICATION
     Dosage: 100 MG, UNK
     Route: 065

REACTIONS (3)
  - No adverse event [Unknown]
  - Drug administered to patient of inappropriate age [Unknown]
  - Off label use [Unknown]

NARRATIVE: CASE EVENT DATE: 20151013
